FAERS Safety Report 25471007 (Version 1)
Quarter: 2025Q2

REPORT INFORMATION
  Report Type: Spontaneous
  Country: NL (occurrence: NL)
  Receive Date: 20250624
  Receipt Date: 20250624
  Transmission Date: 20250716
  Serious: Yes (Disabling)
  Sender: TEVA
  Company Number: None

PATIENT
  Age: 93 Year
  Sex: Male

DRUGS (1)
  1. PREDNISOLONE [Suspect]
     Active Substance: PREDNISOLONE
     Indication: Polymyalgia rheumatica
     Dosage: 1D2 PIECES (OF 5 MG), BRAND NAME NOT SPECIFIED
     Route: 048
     Dates: start: 20250101

REACTIONS (1)
  - Tendon rupture [Not Recovered/Not Resolved]
